FAERS Safety Report 15245786 (Version 1)
Quarter: 2018Q3

REPORT INFORMATION
  Report Type: Spontaneous
  Country: DK (occurrence: DK)
  Receive Date: 20180806
  Receipt Date: 20180806
  Transmission Date: 20181010
  Serious: Yes (Other)
  Sender: FDA-Public Use
  Company Number: PHHY2018DK062930

PATIENT
  Age: 38 Year
  Sex: Male
  Weight: 71 kg

DRUGS (2)
  1. EXFORGE HCT [Suspect]
     Active Substance: AMLODIPINE BESYLATE\HYDROCHLOROTHIAZIDE\VALSARTAN
     Indication: HYPERTENSION
     Dosage: 1 DF, QD (STRENGTH: 10 MG + 160 MG + 12,5 MG)
     Route: 048
     Dates: start: 20161010, end: 20180526
  2. BRICANYL [Concomitant]
     Active Substance: TERBUTALINE SULFATE
     Indication: BRONCHOSPASM
     Dosage: 1 DF, UNK (STYRKE: 0,5 MG/DOSIS. DOSIS: 1 SUG P.N., H?JST 1 GANG DAGLIGT)
     Route: 055
     Dates: start: 20180507

REACTIONS (4)
  - Throat irritation [Recovered/Resolved]
  - Cough [Recovered/Resolved]
  - Peripheral swelling [Recovered/Resolved]
  - Angioedema [Recovered/Resolved]

NARRATIVE: CASE EVENT DATE: 20180525
